FAERS Safety Report 6955833-4 (Version None)
Quarter: 2010Q3

REPORT INFORMATION
  Report Type: 
  Country: None (occurrence: None)
  Receive Date: 20100830
  Receipt Date: 20100527
  Transmission Date: 20110219
  Serious: Yes (Other)
  Sender: FDA-Public Use
  Company Number: US-AMGEN-QUU414919

PATIENT
  Age: 69 Year
  Sex: Female

DRUGS (3)
  1. NPLATE [Suspect]
     Indication: IDIOPATHIC THROMBOCYTOPENIC PURPURA
     Dates: start: 20100201
  2. UNSPECIFIED MEDICATION [Concomitant]
  3. UNSPECIFIED ANTINEOPLASTIC AGENT [Concomitant]
     Dates: end: 20100101

REACTIONS (1)
  - DRUG INEFFECTIVE [None]
